FAERS Safety Report 17813464 (Version 1)
Quarter: 2020Q2

REPORT INFORMATION
  Report Type: Spontaneous
  Country: DE (occurrence: DE)
  Receive Date: 20200521
  Receipt Date: 20200521
  Transmission Date: 20200714
  Serious: Yes (Hospitalization)
  Sender: FDA-Public Use
  Company Number: NVSC2020DE136481

PATIENT
  Age: 58 Year
  Sex: Male

DRUGS (1)
  1. AMOXICILLIN AND CLAVULANATE POTASSIUM [Suspect]
     Active Substance: AMOXICILLIN\CLAVULANATE POTASSIUM
     Indication: PRODUCT USED FOR UNKNOWN INDICATION
     Dosage: UNK
     Route: 065

REACTIONS (7)
  - Localised infection [Recovered/Resolved]
  - Pain [Recovered/Resolved]
  - Pruritus [Recovered/Resolved]
  - Face oedema [Recovered/Resolved]
  - Blister [Recovered/Resolved]
  - Inflammation [Recovered/Resolved]
  - Rash [Recovered/Resolved]
